FAERS Safety Report 20031449 (Version 1)
Quarter: 2021Q4

REPORT INFORMATION
  Report Type: Spontaneous
  Country: NL (occurrence: NL)
  Receive Date: 20211103
  Receipt Date: 20211103
  Transmission Date: 20220303
  Serious: Yes (Other)
  Sender: FDA-Public Use
  Company Number: None

PATIENT
  Age: 61 Year
  Sex: Male
  Weight: 91 kg

DRUGS (2)
  1. ROSUVASTATIN [Suspect]
     Active Substance: ROSUVASTATIN
     Indication: Disease risk factor
     Dosage: 1 DOSAGE FORMS DAILY; THERAPY END DATE : ASKU
     Dates: start: 20180920
  2. CARBASALAATCALCIUM Brand name not specified [Concomitant]
     Dosage: SACHET (POWDER), 100 MG (MILLIGRAM) ,THERAPY START DATE AND END DATE : ASKU

REACTIONS (2)
  - Hallucination [Not Recovered/Not Resolved]
  - Abnormal dreams [Not Recovered/Not Resolved]

NARRATIVE: CASE EVENT DATE: 20181101
